FAERS Safety Report 18152623 (Version 3)
Quarter: 2020Q4

REPORT INFORMATION
  Report Type: Spontaneous
  Country: US (occurrence: US)
  Receive Date: 20200814
  Receipt Date: 20201207
  Transmission Date: 20210113
  Serious: No
  Sender: FDA-Public Use
  Company Number: US-BEH-2020121286

PATIENT
  Sex: Female

DRUGS (3)
  1. HIZENTRA [Suspect]
     Active Substance: HUMAN IMMUNOGLOBULIN G
     Indication: MIGRAINE
     Dosage: 10 GRAM, QW
     Route: 058
     Dates: start: 20191122
  2. HIZENTRA [Suspect]
     Active Substance: HUMAN IMMUNOGLOBULIN G
     Indication: IMMUNODEFICIENCY COMMON VARIABLE
  3. HIZENTRA [Suspect]
     Active Substance: HUMAN IMMUNOGLOBULIN G
     Indication: HYPOGAMMAGLOBULINAEMIA

REACTIONS (8)
  - Scar [Unknown]
  - No adverse event [Unknown]
  - Urine output decreased [Unknown]
  - Headache [Unknown]
  - Infusion site extravasation [Unknown]
  - Product use in unapproved indication [Unknown]
  - Joint swelling [Unknown]
  - Dyspnoea [Unknown]
